FAERS Safety Report 24615738 (Version 1)
Quarter: 2024Q4

REPORT INFORMATION
  Report Type: Spontaneous
  Country: US (occurrence: US)
  Receive Date: 20241113
  Receipt Date: 20241113
  Transmission Date: 20250115
  Serious: No
  Sender: SANOFI AVENTIS
  Company Number: US-SA-2024SA326743

PATIENT
  Age: 15 Year
  Sex: Female

DRUGS (10)
  1. DUPIXENT [Suspect]
     Active Substance: DUPILUMAB
     Indication: Dermatitis atopic
     Dosage: 300.000MG QOW
     Route: 058
     Dates: start: 20240904
  2. BUDESONIDE [Concomitant]
     Active Substance: BUDESONIDE
  3. EPINEPHRINE [Concomitant]
     Active Substance: EPINEPHRINE
  4. HYOSCYAMINE [Concomitant]
     Active Substance: HYOSCYAMINE
  5. OMEPRAZOLE [Concomitant]
     Active Substance: OMEPRAZOLE
  6. ONDANSETRON [Concomitant]
     Active Substance: ONDANSETRON
  7. SERTRALINE [Concomitant]
     Active Substance: SERTRALINE HYDROCHLORIDE
  8. SUCRALFATE [Concomitant]
     Active Substance: SUCRALFATE
  9. TACROLIMUS [Concomitant]
     Active Substance: TACROLIMUS
  10. NORETHINDRONE ACETATE AND ETHINYL ESTRADIOL [Concomitant]
     Active Substance: ETHINYL ESTRADIOL\NORETHINDRONE ACETATE
     Dosage: UNK

REACTIONS (1)
  - Sleep disorder due to a general medical condition [Unknown]
